FAERS Safety Report 17758321 (Version 2)
Quarter: 2020Q3

REPORT INFORMATION
  Report Type: Spontaneous
  Country: JP (occurrence: JP)
  Receive Date: 20200507
  Receipt Date: 20200811
  Transmission Date: 20201102
  Serious: Yes (Life-Threatening, Hospitalization, Other)
  Sender: FDA-Public Use
  Company Number: JP-FERRINGPH-2020FE02971

PATIENT
  Age: 89 Year
  Sex: Male
  Weight: 69 kg

DRUGS (15)
  1. ISOSORBIDE MONONITRATE. [Concomitant]
     Active Substance: ISOSORBIDE MONONITRATE
     Dosage: UNK
  2. KALIMATE [Concomitant]
     Active Substance: CALCIUM POLYSTYRENE SULFONATE
     Dosage: UNK
  3. DIQUAS [Concomitant]
     Active Substance: DIQUAFOSOL TETRASODIUM
     Dosage: UNK
  4. BICALUTAMID [Concomitant]
     Active Substance: BICALUTAMIDE
     Dosage: 80 MG, DAILY
     Route: 048
     Dates: start: 20200416
  5. BELSOMRA [Concomitant]
     Active Substance: SUVOREXANT
     Dosage: UNK
  6. TOVIAZ [Concomitant]
     Active Substance: FESOTERODINE FUMARATE
     Dosage: UNK
  7. GONAX [Suspect]
     Active Substance: DEGARELIX
     Dosage: 80 MG, EVERY 4 WEEKS
     Route: 058
     Dates: start: 20190613, end: 20200416
  8. MYTEAR [BORIC ACID] [Concomitant]
     Dosage: UNK
  9. GONAX [Suspect]
     Active Substance: DEGARELIX
     Indication: PROSTATE CANCER METASTATIC
     Dosage: EVERY 4 WEEKS
     Route: 058
     Dates: start: 202005
  10. BENIDIPINE HYDROCHLORIDE [Concomitant]
     Active Substance: BENIDIPINE HYDROCHLORIDE
     Dosage: UNK
  11. HEPARINOID [Concomitant]
     Active Substance: CHONDROITIN SULFATE (BOVINE)
     Dosage: UNK
  12. BAYASPIRIN [Concomitant]
     Active Substance: ASPIRIN
     Dosage: UNK
  13. NICORANDIL [Concomitant]
     Active Substance: NICORANDIL
     Dosage: UNK
  14. MAGMITT [Concomitant]
     Active Substance: MAGNESIUM OXIDE
     Dosage: UNK
  15. NEXIUM [Concomitant]
     Active Substance: ESOMEPRAZOLE MAGNESIUM
     Dosage: UNK

REACTIONS (1)
  - Immune thrombocytopenia [Recovered/Resolved]

NARRATIVE: CASE EVENT DATE: 20200417
